FAERS Safety Report 24678076 (Version 1)
Quarter: 2024Q4

REPORT INFORMATION
  Report Type: Spontaneous
  Country: IN (occurrence: IN)
  Receive Date: 20241129
  Receipt Date: 20241129
  Transmission Date: 20250114
  Serious: Yes (Hospitalization, Other)
  Sender: IPCA
  Company Number: IN-IPCA LABORATORIES LIMITED-IPC-2024-IN-002736

PATIENT

DRUGS (1)
  1. METOCLOPRAMIDE [Suspect]
     Active Substance: METOCLOPRAMIDE
     Indication: Hyperemesis gravidarum
     Dosage: 10 MILLIGRAM, QID
     Route: 042

REACTIONS (3)
  - Opsoclonus myoclonus [Recovered/Resolved]
  - Ataxia [Recovered/Resolved]
  - Maternal exposure during pregnancy [Unknown]
